FAERS Safety Report 24137947 (Version 1)
Quarter: 2024Q3

REPORT INFORMATION
  Report Type: Report from Study
  Country: CA (occurrence: CA)
  Receive Date: 20240725
  Receipt Date: 20240725
  Transmission Date: 20241017
  Serious: Yes (Hospitalization)
  Sender: HLS THERAPEUTICS
  Company Number: CA-HLS-202401730

PATIENT
  Age: 73 Year
  Sex: Female

DRUGS (1)
  1. CLOZARIL [Suspect]
     Active Substance: CLOZAPINE
     Indication: Product used for unknown indication
     Route: 048
     Dates: start: 20010822

REACTIONS (15)
  - Blood pressure decreased [Recovered/Resolved]
  - Catatonia [Unknown]
  - Confusional state [Unknown]
  - Vertigo [Recovered/Resolved]
  - Enuresis [Recovered/Resolved]
  - Enuresis [Unknown]
  - Salivary hypersecretion [Recovered/Resolved]
  - Salivary hypersecretion [Unknown]
  - Headache [Recovered/Resolved]
  - Somnolence [Not Recovered/Not Resolved]
  - Tachycardia [Recovering/Resolving]
  - Treatment noncompliance [Not Recovered/Not Resolved]
  - Waist circumference increased [Recovered/Resolved]
  - Weight increased [Recovered/Resolved]
  - Weight increased [Recovered/Resolved]

NARRATIVE: CASE EVENT DATE: 20240228
